FAERS Safety Report 8054366-4 (Version None)
Quarter: 2012Q1

REPORT INFORMATION
  Report Type: 
  Country: None (occurrence: None)
  Receive Date: 20120118
  Receipt Date: 20120112
  Transmission Date: 20120608
  Serious: Yes (Other)
  Sender: FDA-Public Use
  Company Number: GR-AMGEN-GRCSP2011065601

PATIENT
  Age: 54 Year
  Sex: Female

DRUGS (4)
  1. PROLIA [Suspect]
     Indication: OSTEOPOROSIS POSTMENOPAUSAL
     Dosage: 60 MG, Q6MO
     Dates: start: 20110301, end: 20110301
  2. CALCIUM [Concomitant]
  3. PROLIA [Suspect]
     Dosage: 60 MG, UNK
     Dates: start: 20110901, end: 20110901
  4. VITAMIN D [Concomitant]

REACTIONS (3)
  - PERIODONTITIS [None]
  - BONE DENSITY DECREASED [None]
  - OSTEOLYSIS [None]
